FAERS Safety Report 9282161 (Version 2)
Quarter: 2013Q2

REPORT INFORMATION
  Report Type: Spontaneous
  Country: US (occurrence: US)
  Receive Date: 20130510
  Receipt Date: 20130527
  Transmission Date: 20140414
  Serious: No
  Sender: FDA-Public Use
  Company Number: US-PFIZER INC-2013141772

PATIENT
  Age: 70 Year
  Sex: Female
  Weight: 76.6 kg

DRUGS (3)
  1. LEVOXYL [Suspect]
     Indication: HYPOTHYROIDISM
     Dosage: 0.1 MG, ONCE A DAY (SIX DAYS A WEEK)
     Dates: start: 201209
  2. LEVOXYL [Suspect]
     Indication: THYROID DISORDER
     Dosage: 50 UG, (2 TABS 6DAYS A WEEK AND 3TABS ON DAY 7)
     Route: 048
     Dates: start: 20121008
  3. FORADIL [Concomitant]
     Indication: ASTHMA
     Dosage: 12 UG, 2X/DAY

REACTIONS (1)
  - Gastric disorder [Unknown]
